FAERS Safety Report 6074599-6 (Version None)
Quarter: 2009Q1

REPORT INFORMATION
  Report Type: 
  Country: None (occurrence: None)
  Receive Date: 20090209
  Receipt Date: 20090128
  Transmission Date: 20090719
  Serious: Yes (Other)
  Sender: FDA-Public Use
  Company Number: CHPA2009US01783

PATIENT
  Age: 57 Year
  Sex: Female
  Weight: 52.6 kg

DRUGS (2)
  1. VOLTAREN [Suspect]
     Indication: GOUT
     Dosage: TID,TOPICAL; ONCE,TOPICAL
     Route: 061
     Dates: start: 20081222, end: 20081222
  2. VOLTAREN [Suspect]
     Indication: GOUT
     Dosage: TID,TOPICAL; ONCE,TOPICAL
     Route: 061
     Dates: start: 20081223, end: 20081223

REACTIONS (3)
  - APPLICATION SITE EXFOLIATION [None]
  - APPLICATION SITE VESICLES [None]
  - ONYCHOMADESIS [None]
